FAERS Safety Report 6017978-5 (Version None)
Quarter: 2008Q4

REPORT INFORMATION
  Report Type: 
  Country: None (occurrence: None)
  Receive Date: 20081223
  Receipt Date: 20081218
  Transmission Date: 20090506
  Serious: Yes (Life-Threatening, Hospitalization)
  Sender: FDA-Public Use
  Company Number: A0761114A

PATIENT
  Sex: Female

DRUGS (1)
  1. AMOXICILLIN + CLAVULANATE POTASSIUM [Suspect]
     Route: 065

REACTIONS (8)
  - BLISTER [None]
  - EYE SWELLING [None]
  - EYELID OEDEMA [None]
  - HEADACHE [None]
  - PAIN [None]
  - PULMONARY FUNCTION TEST DECREASED [None]
  - SKIN EXFOLIATION [None]
  - TOXIC EPIDERMAL NECROLYSIS [None]
